FAERS Safety Report 6373353-5 (Version None)
Quarter: 2009Q3

REPORT INFORMATION
  Report Type: 
  Country: None (occurrence: None)
  Receive Date: 20090924
  Receipt Date: 20090623
  Transmission Date: 20100115
  Serious: Yes (Other)
  Sender: FDA-Public Use
  Company Number: US-ASTRAZENECA-2009UW08443

PATIENT
  Age: 737 Month
  Sex: Male
  Weight: 101.6 kg

DRUGS (29)
  1. SEROQUEL [Suspect]
     Indication: BIPOLAR DISORDER
     Dosage: 50 TO 200 MG
     Route: 048
     Dates: start: 20021101, end: 20081101
  2. SEROQUEL [Suspect]
     Indication: OBSESSIVE-COMPULSIVE DISORDER
     Dosage: 50 TO 200 MG
     Route: 048
     Dates: start: 20021101, end: 20081101
  3. SEROQUEL [Suspect]
     Indication: GENERALISED ANXIETY DISORDER
     Dosage: 50 TO 200 MG
     Route: 048
     Dates: start: 20021101, end: 20081101
  4. SEROQUEL [Suspect]
     Indication: ATTENTION DEFICIT/HYPERACTIVITY DISORDER
     Dosage: 50 TO 200 MG
     Route: 048
     Dates: start: 20021101, end: 20081101
  5. ABILIFY [Concomitant]
     Dosage: 10 TO 15 MG
     Dates: start: 20030501, end: 20080101
  6. GEODON [Concomitant]
     Dosage: 20 TO 80 MG
     Dates: start: 20090101
  7. GEODON [Concomitant]
     Dosage: 20 TO 80 MG
     Dates: start: 20051001, end: 20070101
  8. LITHOBID [Concomitant]
     Dates: start: 20061201, end: 20070101
  9. NORTRIPTYLINE HCL [Concomitant]
     Dosage: 25 TO 100 MG
     Dates: start: 20040801, end: 20060501
  10. PROVIGIL [Concomitant]
     Dosage: 100 TO 200 MG
     Dates: start: 20040501, end: 20050901
  11. BUSPIRONE HCL [Concomitant]
     Dosage: 5 TO 30 MG
     Dates: start: 20040401, end: 20050701
  12. ZONEGRAN [Concomitant]
     Dosage: 100 TO 300 MG
     Dates: start: 20040601, end: 20040701
  13. TRAZODONE HCL [Concomitant]
     Dates: start: 20080301, end: 20081001
  14. LEXAPRO [Concomitant]
     Dosage: 10 TO 40 MG
     Dates: start: 20021101, end: 20071201
  15. CYMBALTA [Concomitant]
     Dosage: 20 TO 60 MG
     Dates: start: 20041001, end: 20080701
  16. LORAZEPAM [Concomitant]
     Dates: start: 20040101, end: 20080301
  17. VISTARIL [Concomitant]
     Dates: start: 20070901, end: 20071101
  18. WELLBUTRIN [Concomitant]
  19. TOPAMAX [Concomitant]
     Dates: start: 20070401, end: 20070701
  20. SERZONE [Concomitant]
     Dosage: 150 TO 450 MG
     Dates: start: 20020101
  21. METADATE CD [Concomitant]
     Dates: start: 20030401, end: 20031201
  22. ATIVAN [Concomitant]
     Dates: start: 20030201, end: 20030801
  23. CONCERTA [Concomitant]
     Dates: start: 20040101, end: 20040301
  24. MAPROTILINE [Concomitant]
     Dates: start: 20040301, end: 20040401
  25. BISOPROLOL FUMARATE AND HYDROCHLOROTHIAZIDE [Concomitant]
     Dosage: 5/6.25
     Dates: start: 20041101
  26. AZITHROMYCIN [Concomitant]
     Dates: start: 20061001
  27. LITHIUM CARBONATE ER [Concomitant]
     Dates: start: 20061201
  28. HYDROXYZINE [Concomitant]
     Dates: start: 20070901
  29. CLONAZEPAM [Concomitant]
     Dates: start: 20090201

REACTIONS (2)
  - DIABETES MELLITUS [None]
  - SUICIDAL IDEATION [None]
